FAERS Safety Report 9527079 (Version 1)
Quarter: 2013Q3

REPORT INFORMATION
  Report Type: Spontaneous
  Country: US (occurrence: US)
  Receive Date: 20130916
  Receipt Date: 20130916
  Transmission Date: 20140515
  Serious: Yes (Other)
  Sender: FDA-Public Use
  Company Number: US-TEVA-395664USA

PATIENT
  Sex: Male
  Weight: 99.09 kg

DRUGS (8)
  1. FOLINIC ACID [Suspect]
     Route: 042
     Dates: start: 20130130, end: 20130130
  2. ZALTRAP (ZIVAFLIBERCEPT) [Suspect]
     Indication: COLON CANCER
     Dosage: 28.5714 MILLIGRAM DAILY;
     Route: 041
     Dates: start: 20130130, end: 20130130
  3. ZALTRAP (ZIVAFLIBERCEPT) [Suspect]
     Dates: start: 20130213, end: 20130213
  4. ZALTRAP (ZIVAFLIBERCEPT) [Suspect]
     Dates: start: 20130227, end: 20130227
  5. IRINOTECAN [Suspect]
     Indication: COLON CANCER
     Dosage: 400UNIT
     Dates: start: 20130130, end: 20130130
  6. EMEND [Concomitant]
     Dates: start: 20130130
  7. DEXAMETHASONE [Concomitant]
     Dates: start: 20130130
  8. PALONOSETRON HYDROCHLORIDE [Concomitant]
     Dates: start: 20130130

REACTIONS (3)
  - Hypersensitivity [Recovered/Resolved]
  - Flushing [Recovered/Resolved]
  - Chest discomfort [Recovered/Resolved]
